FAERS Safety Report 4933664-4 (Version None)
Quarter: 2006Q1

REPORT INFORMATION
  Report Type: 
  Country: None (occurrence: None)
  Receive Date: 20060306
  Receipt Date: 20060222
  Transmission Date: 20060701
  Serious: Yes (Death, Other)
  Sender: FDA-Public Use
  Company Number: FR-BRISTOL-MYERS SQUIBB COMPANY-13293972

PATIENT
  Age: 35 Year

DRUGS (2)
  1. ZERIT [Suspect]
     Route: 048
  2. LAMIVUDINE [Concomitant]

REACTIONS (2)
  - DEATH [None]
  - PROGRESSIVE MULTIFOCAL LEUKOENCEPHALOPATHY [None]
